FAERS Safety Report 7145375-8 (Version None)
Quarter: 2010Q4

REPORT INFORMATION
  Report Type: 
  Country: None (occurrence: None)
  Receive Date: 20101208
  Receipt Date: 20101130
  Transmission Date: 20110411
  Serious: Yes (Other)
  Sender: FDA-Public Use
  Company Number: US-ROCHE-731701

PATIENT
  Sex: Female
  Weight: 99.8 kg

DRUGS (14)
  1. BONIVA [Suspect]
     Indication: OSTEOPOROSIS
     Dosage: FIRST INJECTION, INDICATION: BAD BONE SCAN
     Route: 042
     Dates: start: 20100301
  2. BONIVA [Suspect]
     Dosage: 2ND INJECTION
     Route: 042
     Dates: start: 20100602, end: 20100826
  3. BONIVA [Suspect]
     Indication: BONE DENSITY DECREASED
     Dosage: INDICATION: BAD BONE SCAN
     Route: 048
     Dates: end: 20090101
  4. PREVACID [Concomitant]
     Route: 048
     Dates: end: 20101011
  5. NEXIUM [Concomitant]
  6. PROTONIX [Concomitant]
  7. OXYCONTIN [Concomitant]
     Indication: BACK PAIN
     Route: 048
  8. SYNTHROID [Concomitant]
     Indication: HYPOTHYROIDISM
     Route: 048
     Dates: start: 20100611
  9. PROVIGIL [Concomitant]
     Indication: SOMNOLENCE
     Dosage: 2 TABLETS IN THE MORNING
     Route: 048
  10. PLAQUENIL [Concomitant]
  11. PHENERGAN [Concomitant]
  12. HYDROCORTISONE [Concomitant]
     Indication: ADRENAL INSUFFICIENCY
     Dosage: DOSE: 20 IN AM AND 10 AT BEDTIME
     Route: 048
     Dates: start: 20100524
  13. ZYRTEC [Concomitant]
     Dosage: IN THE EVENING (PM)
     Route: 048
  14. VITAMIN B-12 [Concomitant]
     Indication: VITAMIN B12 DEFICIENCY
     Route: 030

REACTIONS (6)
  - ABDOMINAL DISCOMFORT [None]
  - ABDOMINAL PAIN UPPER [None]
  - ASTHENIA [None]
  - GASTRIC DISORDER [None]
  - NAUSEA [None]
  - TREMOR [None]
